FAERS Safety Report 21958242 (Version 1)
Quarter: 2023Q1

REPORT INFORMATION
  Report Type: Spontaneous
  Country: US (occurrence: US)
  Receive Date: 20230206
  Receipt Date: 20230206
  Transmission Date: 20230418
  Serious: Yes (Other)
  Sender: FDA-Public Use
  Company Number: US-BEH-2023154813

PATIENT
  Sex: Male

DRUGS (6)
  1. IDELVION [Suspect]
     Active Substance: COAGULATION FACTOR IX RECOMBINANT HUMAN
     Indication: Factor IX deficiency
     Dosage: 551 INTERNATIONAL UNIT, QOD
     Route: 042
     Dates: start: 20220215
  2. IDELVION [Suspect]
     Active Substance: COAGULATION FACTOR IX RECOMBINANT HUMAN
     Indication: Factor IX deficiency
     Dosage: 551 INTERNATIONAL UNIT, QOD
     Route: 042
     Dates: start: 20220215
  3. IDELVION [Suspect]
     Active Substance: COAGULATION FACTOR IX RECOMBINANT HUMAN
     Dosage: 3757 INTERNATIONAL UNIT, QOD
     Route: 042
     Dates: start: 20220215
  4. IDELVION [Suspect]
     Active Substance: COAGULATION FACTOR IX RECOMBINANT HUMAN
     Dosage: 3757 INTERNATIONAL UNIT, QOD
     Route: 042
     Dates: start: 20220215
  5. IDELVION [Suspect]
     Active Substance: COAGULATION FACTOR IX RECOMBINANT HUMAN
     Dosage: UNK, PRN
     Route: 042
  6. IDELVION [Suspect]
     Active Substance: COAGULATION FACTOR IX RECOMBINANT HUMAN
     Dosage: UNK, PRN
     Route: 042

REACTIONS (2)
  - Haemorrhage intracranial [Recovered/Resolved]
  - Haemarthrosis [Recovered/Resolved]
